FAERS Safety Report 23321182 (Version 1)
Quarter: 2023Q4

REPORT INFORMATION
  Report Type: Spontaneous
  Country: US (occurrence: US)
  Receive Date: 20231220
  Receipt Date: 20231220
  Transmission Date: 20240109
  Serious: No
  Sender: FDA-Public Use
  Company Number: US-OPELLA-2023OHG018149

PATIENT
  Age: 84 Year
  Sex: Female

DRUGS (1)
  1. DULCOLAX PINK [Suspect]
     Active Substance: BISACODYL
     Indication: Product used for unknown indication

REACTIONS (3)
  - Constipation [Unknown]
  - Urinary incontinence [Unknown]
  - Product use issue [Unknown]
